FAERS Safety Report 14917900 (Version 1)
Quarter: 2018Q2

REPORT INFORMATION
  Report Type: Spontaneous
  Country: US (occurrence: US)
  Receive Date: 20180501
  Receipt Date: 20180501
  Transmission Date: 20180711
  Serious: No
  Sender: FDA-Public Use
  Company Number: None

PATIENT
  Age: 77 Year
  Sex: Male

DRUGS (1)
  1. ZYTIGA [Suspect]
     Active Substance: ABIRATERONE ACETATE

REACTIONS (4)
  - Prostatic specific antigen abnormal [None]
  - Drug dose omission [None]
  - Sepsis [None]
  - Confusional state [None]

NARRATIVE: CASE EVENT DATE: 20180501
